FAERS Safety Report 20081642 (Version 3)
Quarter: 2022Q2

REPORT INFORMATION
  Report Type: Spontaneous
  Country: IN (occurrence: IN)
  Receive Date: 20211117
  Receipt Date: 20220518
  Transmission Date: 20220721
  Serious: Yes (Other)
  Sender: FDA-Public Use
  Company Number: IN-PFIZER INC-2021666309

PATIENT
  Age: 51 Year
  Sex: Female

DRUGS (5)
  1. PALBOCICLIB [Suspect]
     Active Substance: PALBOCICLIB
     Indication: Breast cancer metastatic
     Dosage: 125 MG, 1X/DAY
     Route: 048
     Dates: start: 20210507
  2. LETROZOLE [Concomitant]
     Active Substance: LETROZOLE
     Dosage: 2.5 MG, 1X/DAY
     Route: 048
  3. SHELCAL [CALCIUM CARBONATE;COLECALCIFEROL] [Concomitant]
     Dosage: 500 OD
  4. SHELCAL [CALCIUM CARBONATE;COLECALCIFEROL] [Concomitant]
     Dosage: 500 MG, 1X/DAY
  5. PREGABA-M [Concomitant]
     Dosage: AT BEDTIME TO CONTINUE

REACTIONS (13)
  - Blood albumin increased [Unknown]
  - Dry eye [Unknown]
  - Dry skin [Unknown]
  - Pruritus [Unknown]
  - Lithiasis [Unknown]
  - Facial spasm [Unknown]
  - Myalgia [Unknown]
  - Dyspepsia [Unknown]
  - Pain in extremity [Unknown]
  - Persistent depressive disorder [Unknown]
  - Pain [Unknown]
  - Neoplasm progression [Unknown]
  - Upper respiratory tract infection [Unknown]

NARRATIVE: CASE EVENT DATE: 20210101
